FAERS Safety Report 6306139-8 (Version None)
Quarter: 2009Q3

REPORT INFORMATION
  Report Type: 
  Country: None (occurrence: None)
  Receive Date: 20090810
  Receipt Date: 20090810
  Transmission Date: 20100115
  Serious: No
  Sender: FDA-Public Use
  Company Number: None

PATIENT
  Age: 48 Year
  Sex: Female

DRUGS (1)
  1. OXYBUTYNIN 10MG MYLAN [Suspect]
     Dosage: 30MG 1 TABLET DAILY PO
     Route: 048

REACTIONS (1)
  - NO ADVERSE EVENT [None]
